FAERS Safety Report 10191896 (Version 1)
Quarter: 2014Q2

REPORT INFORMATION
  Report Type: Spontaneous
  Country: MY (occurrence: MY)
  Receive Date: 20140523
  Receipt Date: 20140523
  Transmission Date: 20141212
  Serious: Yes (Other)
  Sender: FDA-Public Use
  Company Number: MY-WATSON-2014-10962

PATIENT
  Age: 23 Year
  Sex: Female

DRUGS (4)
  1. PREDNISOLONE (UNKNOWN) [Suspect]
     Indication: PEMPHIGUS
     Dosage: UNK
     Route: 065
  2. METHOTREXATE (UNKNOWN) [Suspect]
     Indication: PEMPHIGUS
     Dosage: 12.5 MG/WEEK GRADUALLY INCREASEDTO 20 MG/WEEK
     Route: 048
  3. IMMUNGLOBULIN [Concomitant]
     Indication: PEMPHIGUS
     Dosage: 2 G/KG/DAY TWO COURSES
     Route: 042
  4. FOLIC ACID [Concomitant]
     Indication: PRODUCT USED FOR UNKNOWN INDICATION
     Dosage: UNK
     Route: 065

REACTIONS (5)
  - Sepsis [Unknown]
  - Skin infection [Unknown]
  - Erythema [Recovering/Resolving]
  - Hypokalaemia [Unknown]
  - Hypoalbuminaemia [Unknown]
